FAERS Safety Report 6898265-X (Version None)
Quarter: 2010Q3

REPORT INFORMATION
  Report Type: 
  Country: None (occurrence: None)
  Receive Date: 20100729
  Receipt Date: 20100721
  Transmission Date: 20110219
  Serious: Yes (Hospitalization)
  Sender: FDA-Public Use
  Company Number: 014082

PATIENT
  Sex: Male

DRUGS (12)
  1. KEPPRA [Suspect]
     Indication: CONVULSION
     Dosage: 625 MG
     Dates: end: 20100519
  2. KEPPRA [Suspect]
     Dosage: 500 MG QD, ONE TABLET AT HS
     Dates: start: 20100520, end: 20100527
  3. ASPIRIN [Concomitant]
  4. TUMS [Concomitant]
  5. FISH OIL [Concomitant]
  6. LEVOTHYROXINE SODIUM [Concomitant]
  7. CARBIDOPA AND LEVODOPA [Concomitant]
  8. TOPRAL [Concomitant]
  9. HYDROXYUREA [Concomitant]
  10. ACTOS [Concomitant]
  11. GLUCOPHAGE [Concomitant]
  12. GLIPIZIDE [Concomitant]

REACTIONS (3)
  - CARDIO-RESPIRATORY ARREST [None]
  - HALLUCINATION [None]
  - PNEUMONIA [None]
